FAERS Safety Report 8935746 (Version 1)
Quarter: 2012Q4

REPORT INFORMATION
  Report Type: Spontaneous
  Country: US (occurrence: None)
  Receive Date: 20121121
  Receipt Date: 20121121
  Transmission Date: 20130627
  Serious: Yes (Death)
  Sender: FDA-Public Use
  Company Number: UTC-025362

PATIENT
  Age: 69 Year
  Sex: Female
  Weight: 75.9 kg

DRUGS (5)
  1. TYVASO (6 MICROGRAM, AEROSOL FOR INHALATION) (TREPROSTINIL SODIUM) [Suspect]
     Indication: PRIMARY PULMONARY HYPERTENSION
     Dosage: (54 mcg, 4 in 1 D)
     Route: 055
     Dates: start: 20110530
  2. REVATIO [Concomitant]
  3. TRACLEER (BOSENTAN) (UNKNOWN) [Concomitant]
  4. SPIRIVA (TIOTROPIUM BROMIDE) (UNKNOWN) [Concomitant]
  5. PROVENTIL HFA (SALBUTAMOL) (UNKNOWN) [Concomitant]

REACTIONS (2)
  - Death [None]
  - Cough [None]
